FAERS Safety Report 23463969 (Version 7)
Quarter: 2024Q1

REPORT INFORMATION
  Report Type: Report from Study
  Country: ES (occurrence: ES)
  Receive Date: 20240201
  Receipt Date: 20240305
  Transmission Date: 20240409
  Serious: Yes (Hospitalization)
  Sender: FDA-Public Use
  Company Number: ES-ABBVIE-5589504

PATIENT
  Age: 77 Year
  Sex: Male

DRUGS (2)
  1. CARBIDOPA\LEVODOPA [Suspect]
     Active Substance: CARBIDOPA\LEVODOPA
     Indication: Parkinson^s disease
     Route: 050
     Dates: start: 20240111
  2. CARBIDOPA\LEVODOPA [Suspect]
     Active Substance: CARBIDOPA\LEVODOPA

REACTIONS (9)
  - Respiratory tract infection [Recovering/Resolving]
  - Influenza [Recovering/Resolving]
  - Pneumonia aspiration [Recovered/Resolved]
  - Stoma site discharge [Recovered/Resolved]
  - Stoma site erythema [Recovered/Resolved]
  - Dysphagia [Unknown]
  - Pyrexia [Recovered/Resolved]
  - Fungal disease carrier [Unknown]
  - Stoma site infection [Recovered/Resolved]

NARRATIVE: CASE EVENT DATE: 20240101
